FAERS Safety Report 7211971-2 (Version None)
Quarter: 2011Q1

REPORT INFORMATION
  Report Type: 
  Country: None (occurrence: None)
  Receive Date: 20110106
  Receipt Date: 20101231
  Transmission Date: 20110831
  Serious: No
  Sender: FDA-Public Use
  Company Number: US-BIOGENIDEC-2011BI000400

PATIENT
  Sex: Female

DRUGS (4)
  1. TYSABRI [Suspect]
     Indication: MULTIPLE SCLEROSIS
     Route: 042
     Dates: start: 20090201
  2. ANTIDEPRESSANT [Concomitant]
     Indication: DEPRESSION
  3. TYSABRI [Suspect]
     Route: 042
     Dates: start: 20050210
  4. CRESTOR [Concomitant]
     Indication: BLOOD CHOLESTEROL INCREASED

REACTIONS (3)
  - INSOMNIA [None]
  - BURSITIS [None]
  - WEIGHT INCREASED [None]
